FAERS Safety Report 15519673 (Version 1)
Quarter: 2018Q4

REPORT INFORMATION
  Report Type: Report from Study
  Country: US (occurrence: US)
  Receive Date: 20181017
  Receipt Date: 20181017
  Transmission Date: 20190205
  Serious: No
  Sender: FDA-Public Use
  Company Number: US-AMGEN-USASL2018098630

PATIENT
  Age: 73 Year
  Sex: Male

DRUGS (1)
  1. REPATHA [Suspect]
     Active Substance: EVOLOCUMAB
     Indication: HYPERLIPIDAEMIA
     Dosage: 140 MG, Q2WK
     Route: 058

REACTIONS (7)
  - Back pain [Not Recovered/Not Resolved]
  - Peripheral swelling [Not Recovered/Not Resolved]
  - Dysuria [Recovering/Resolving]
  - Arthralgia [Not Recovered/Not Resolved]
  - Vision blurred [Not Recovered/Not Resolved]
  - Swelling face [Not Recovered/Not Resolved]
  - Pain in extremity [Not Recovered/Not Resolved]
